FAERS Safety Report 9005115 (Version 1)
Quarter: 2013Q1

REPORT INFORMATION
  Report Type: Spontaneous
  Country: BR (occurrence: BR)
  Receive Date: 20130109
  Receipt Date: 20130109
  Transmission Date: 20140127
  Serious: Yes (Other)
  Sender: FDA-Public Use
  Company Number: BR-BRISTOL-MYERS SQUIBB COMPANY-17267246

PATIENT
  Age: 80 Year
  Sex: Female

DRUGS (1)
  1. ONGLYZA TABS 5 MG [Suspect]

REACTIONS (1)
  - Aortic aneurysm [Unknown]
